FAERS Safety Report 5028377-7 (Version None)
Quarter: 2006Q2

REPORT INFORMATION
  Report Type: 
  Country: None (occurrence: None)
  Receive Date: 20060613
  Receipt Date: 20060531
  Transmission Date: 20061013
  Serious: Yes (Other)
  Sender: FDA-Public Use
  Company Number: 225372

PATIENT
  Age: 53 Year
  Sex: Female

DRUGS (4)
  1. AVASTIN [Suspect]
     Indication: NON-SMALL CELL LUNG CANCER
     Dosage: INTRAVENOUS
     Route: 042
     Dates: start: 20060427
  2. PEMETREXED (PEMETREXED) [Suspect]
     Indication: NON-SMALL CELL LUNG CANCER
     Dosage: 1015 MG, INTRAVENOUS
     Route: 042
     Dates: start: 20060427
  3. NEXIUM [Concomitant]
  4. COUMADIN [Concomitant]

REACTIONS (3)
  - CATHETER RELATED INFECTION [None]
  - INTERNATIONAL NORMALISED RATIO DECREASED [None]
  - STAPHYLOCOCCAL INFECTION [None]
